FAERS Safety Report 7604586-5 (Version None)
Quarter: 2011Q3

REPORT INFORMATION
  Report Type: 
  Country: None (occurrence: None)
  Receive Date: 20110712
  Receipt Date: 20110704
  Transmission Date: 20111222
  Serious: Yes (Other)
  Sender: FDA-Public Use
  Company Number: CA-PFIZER INC-2011119532

PATIENT
  Age: 87 Year
  Sex: Female

DRUGS (5)
  1. COSOPT [Concomitant]
     Indication: GLAUCOMA
     Dosage: 1 GTT IN LEFT EYE
     Route: 047
  2. ALPHAGAN [Concomitant]
     Indication: GLAUCOMA
     Dosage: 1 GTT IN LEFT EYE
     Route: 047
  3. ALPHAGAN [Concomitant]
     Indication: INTRAOCULAR PRESSURE INCREASED
  4. COSOPT [Concomitant]
     Indication: INTRAOCULAR PRESSURE INCREASED
  5. XALATAN [Suspect]
     Indication: GLAUCOMA
     Dosage: 1 GTT, 1X/DAY IN LEFT EYE
     Route: 047

REACTIONS (1)
  - CATARACT OPERATION [None]
